FAERS Safety Report 9851066 (Version 1)
Quarter: 2014Q1

REPORT INFORMATION
  Report Type: Spontaneous
  Country: US (occurrence: US)
  Receive Date: 20140128
  Receipt Date: 20140128
  Transmission Date: 20141002
  Serious: No
  Sender: FDA-Public Use
  Company Number: US-DYAX CORP.-2013DX000152

PATIENT
  Age: 49 Year
  Sex: Female
  Weight: 55.39 kg

DRUGS (11)
  1. KALBITOR [Suspect]
     Indication: HEREDITARY ANGIOEDEMA
     Route: 058
     Dates: start: 20130729, end: 20130729
  2. KALBITOR [Suspect]
     Route: 058
     Dates: start: 20130727, end: 20130727
  3. KALBITOR [Suspect]
     Route: 058
     Dates: start: 2010
  4. CINRYZE [Concomitant]
     Indication: HEREDITARY ANGIOEDEMA
     Route: 042
     Dates: start: 20130729, end: 20130729
  5. CINRYZE [Concomitant]
     Route: 042
     Dates: start: 201304
  6. DANAZOL [Concomitant]
     Indication: HEREDITARY ANGIOEDEMA
     Route: 048
     Dates: start: 1990
  7. PRAVASTATIN [Concomitant]
     Indication: BLOOD CHOLESTEROL ABNORMAL
     Route: 048
  8. XANAX [Concomitant]
     Indication: STRESS
     Route: 048
  9. XANAX [Concomitant]
     Route: 048
  10. GENERIC VIDOCIN [Concomitant]
     Indication: PAIN
     Route: 048
  11. PHENERGAN [Concomitant]
     Indication: NAUSEA
     Route: 048

REACTIONS (3)
  - Feeling abnormal [Recovered/Resolved]
  - Hypersomnia [Recovered/Resolved]
  - Hereditary angioedema [Recovered/Resolved]
